FAERS Safety Report 12764419 (Version 1)
Quarter: 2016Q3

REPORT INFORMATION
  Report Type: Spontaneous
  Country: US (occurrence: US)
  Receive Date: 20160920
  Receipt Date: 20160920
  Transmission Date: 20161109
  Serious: Yes (Death, Other)
  Sender: FDA-Public Use
  Company Number: US-GLAXOSMITHKLINE-US2016GSK136751

PATIENT
  Age: 59 Year
  Sex: Female

DRUGS (1)
  1. CAMBIA [Suspect]
     Active Substance: DICLOFENAC POTASSIUM
     Indication: PRODUCT USED FOR UNKNOWN INDICATION
     Dosage: UNK, (1 PACKET WITH 1 TO 2 OUNCES OF WATER)
     Route: 048
     Dates: start: 20160517, end: 20160903

REACTIONS (1)
  - Death [Fatal]

NARRATIVE: CASE EVENT DATE: 20160903
